FAERS Safety Report 9325902 (Version 1)
Quarter: 2013Q2

REPORT INFORMATION
  Report Type: Spontaneous
  Country: GB (occurrence: GB)
  Receive Date: 20130604
  Receipt Date: 20130604
  Transmission Date: 20140414
  Serious: Yes (Life-Threatening)
  Sender: FDA-Public Use
  Company Number: GB-COVIDIEN/TYCO HEALTHCARE/MALLINCKRODT-T201302480

PATIENT
  Age: 63 Year
  Sex: Female

DRUGS (2)
  1. OPTIRAY [Suspect]
     Indication: COMPUTERISED TOMOGRAM
     Dosage: 75 ML, SINGLE
     Route: 042
     Dates: start: 20130515, end: 20130515
  2. OPTIRAY [Suspect]
     Indication: ANGIOGRAM PULMONARY
     Dosage: 75 ML, SINGLE
     Route: 042
     Dates: start: 20130515, end: 20130515

REACTIONS (1)
  - Anaphylactic reaction [Recovering/Resolving]
